FAERS Safety Report 8338029-3 (Version None)
Quarter: 2012Q2

REPORT INFORMATION
  Report Type: 
  Country: None (occurrence: None)
  Receive Date: 20120504
  Receipt Date: 20120426
  Transmission Date: 20120825
  Serious: Yes (Other)
  Sender: FDA-Public Use
  Company Number: US-ABBOTT-12P-163-0930297-00

PATIENT
  Sex: Male
  Weight: 104.42 kg

DRUGS (8)
  1. TCZ [Suspect]
     Indication: TUBERCULOSIS
     Dates: start: 20110101
  2. UNNAMED MEDICATION [Suspect]
     Indication: TUBERCULOSIS
     Dates: start: 20110101
  3. COMADIN [Concomitant]
     Indication: ATRIAL FIBRILLATION
  4. ASPIRIN [Concomitant]
     Indication: PRODUCT USED FOR UNKNOWN INDICATION
  5. HUMIRA [Suspect]
     Dates: start: 20100101, end: 20110801
  6. HUMIRA [Suspect]
     Indication: PSORIASIS
     Dates: start: 20090101, end: 20100101
  7. METOPROLOL TARTRATE [Concomitant]
     Indication: CARDIAC DISORDER
  8. MICARDIS [Concomitant]
     Indication: HYPERTENSION

REACTIONS (10)
  - PNEUMONIA [None]
  - CHILLS [None]
  - TUBERCULOSIS [None]
  - PYREXIA [None]
  - URTICARIA [None]
  - PSORIASIS [None]
  - FATIGUE [None]
  - RALES [None]
  - DRUG INEFFECTIVE [None]
  - INCORRECT DOSE ADMINISTERED [None]
